FAERS Safety Report 7161734-1 (Version None)
Quarter: 2010Q4

REPORT INFORMATION
  Report Type: 
  Country: None (occurrence: None)
  Receive Date: 20101215
  Receipt Date: 20101202
  Transmission Date: 20110411
  Serious: Yes (Other)
  Sender: FDA-Public Use
  Company Number: US-ELI_LILLY_AND_COMPANY-US201012001003

PATIENT
  Age: 60 Year
  Sex: Female

DRUGS (12)
  1. CYMBALTA [Suspect]
     Dosage: UNK, UNK
  2. CYMBALTA [Suspect]
     Dosage: 60 MG, UNKNOWN
  3. SIMVASTATIN [Concomitant]
     Dosage: 40 MG, DAILY (1/D)
  4. XANAX [Concomitant]
     Dosage: UNK, DAILY (1/D)
  5. LEVOTHYROXINE [Concomitant]
     Dosage: 112 MG, DAILY (1/D)
  6. ZANTAC [Concomitant]
     Dosage: 75 MG, DAILY (1/D)
  7. IRON [Concomitant]
     Dosage: 325 MG, QOD
  8. FISH OIL [Concomitant]
     Dosage: UNK, UNKNOWN
  9. CALCIUM [Concomitant]
     Dosage: UNK, UNKNOWN
  10. MAGNESIUM [Concomitant]
     Dosage: UNK, UNKNOWN
  11. COQ10 [Concomitant]
     Dosage: UNK, UNKNOWN
  12. TURMERIC [Concomitant]
     Dosage: UNK, UNKNOWN

REACTIONS (1)
  - ANAEMIA [None]
